FAERS Safety Report 5566853-9 (Version None)
Quarter: 2007Q4

REPORT INFORMATION
  Report Type: 
  Country: None (occurrence: None)
  Receive Date: 20071214
  Receipt Date: 20071207
  Transmission Date: 20080405
  Serious: Yes (Other)
  Sender: FDA-Public Use
  Company Number: 163-21880-07110239

PATIENT
  Age: 53 Year
  Sex: Male
  Weight: 98.8842 kg

DRUGS (11)
  1. REVLIMID [Suspect]
     Indication: CHRONIC LYMPHOCYTIC LEUKAEMIA
     Dosage: 15 MG, DAILY FOR 21 OUT OF 28 DAYS, ORAL;  5 MG, DAILY
     Route: 048
     Dates: start: 20071102, end: 20071105
  2. TOPROL-XL [Concomitant]
  3. LIPITOR [Concomitant]
  4. LISINOPRIL [Concomitant]
  5. FOSAMAX [Concomitant]
  6. CALCIUM WITH VITAMIN D (CALCIUM WITH VITAMIN D) [Concomitant]
  7. ZINC (ZINC) [Concomitant]
  8. ALDARA CREAM (IMIQUIMOD) [Concomitant]
  9. METFORMIN (METFORMIN) [Concomitant]
  10. BACTRIM [Concomitant]
  11. PENTAMIDINE (PENTAMIDINE) [Concomitant]

REACTIONS (8)
  - CONDITION AGGRAVATED [None]
  - HYDRONEPHROSIS [None]
  - HYDROURETER [None]
  - LYMPHADENOPATHY [None]
  - PAIN [None]
  - RENAL DISORDER [None]
  - TUMOUR LYSIS SYNDROME [None]
  - VOMITING [None]
